FAERS Safety Report 6986007-9 (Version None)
Quarter: 2010Q3

REPORT INFORMATION
  Report Type: 
  Country: None (occurrence: None)
  Receive Date: 20100915
  Receipt Date: 20100907
  Transmission Date: 20110219
  Serious: Yes (Hospitalization, Other)
  Sender: FDA-Public Use
  Company Number: CA-ABBOTT-10P-028-0668872-00

PATIENT
  Sex: Female
  Weight: 49.94 kg

DRUGS (2)
  1. HUMIRA [Suspect]
     Indication: PSORIATIC ARTHROPATHY
     Route: 058
     Dates: start: 20050824
  2. PSORIATANE [Concomitant]
     Indication: PSORIASIS
     Route: 061

REACTIONS (6)
  - ARTHRALGIA [None]
  - FALL [None]
  - HIP FRACTURE [None]
  - OROPHARYNGEAL PAIN [None]
  - SYNCOPE [None]
  - WEIGHT DECREASED [None]
